FAERS Safety Report 24553768 (Version 1)
Quarter: 2024Q4

REPORT INFORMATION
  Report Type: Report from Study
  Country: US (occurrence: US)
  Receive Date: 20241028
  Receipt Date: 20241028
  Transmission Date: 20250115
  Serious: No
  Sender: ROCHE
  Company Number: US-ROCHE-10000038004

PATIENT
  Age: 8 Year
  Sex: Female
  Weight: 19.0 kg

DRUGS (3)
  1. NUTROPIN AQ [Suspect]
     Active Substance: SOMATROPIN
     Indication: Short stature
     Dosage: NUSPIN 10 MG PEN, 1.2 MG DAILY
     Route: 058
  2. FLUTICASONE [Concomitant]
     Active Substance: FLUTICASONE
     Route: 061
  3. HYDROCORTISONE [Concomitant]
     Active Substance: HYDROCORTISONE

REACTIONS (2)
  - Increased appetite [Unknown]
  - Off label use [Unknown]
